FAERS Safety Report 10610621 (Version 1)
Quarter: 2014Q4

REPORT INFORMATION
  Report Type: Spontaneous
  Country: US (occurrence: None)
  Receive Date: 20141124
  Receipt Date: 20141124
  Transmission Date: 20150529
  Serious: Yes (Hospitalization, Other)
  Sender: FDA-Public Use
  Company Number: US-ZYDUS-005593

PATIENT
  Age: 29 Year
  Sex: Male

DRUGS (3)
  1. LEVETIRACETAM (LEVETIRACETAM) [Suspect]
     Active Substance: LEVETIRACETAM
     Indication: EPILEPSY
  2. CARBAMAZEPINE. [Concomitant]
     Active Substance: CARBAMAZEPINE
  3. VALPROATE SODIUM (VALPROATE SODIUM) [Concomitant]
     Active Substance: VALPROATE SODIUM

REACTIONS (7)
  - Postictal psychosis [None]
  - Paranoia [None]
  - Impulsive behaviour [None]
  - Homicide [None]
  - Delusion [None]
  - Seizure [None]
  - Aggression [None]
